FAERS Safety Report 21618187 (Version 2)
Quarter: 2022Q4

REPORT INFORMATION
  Report Type: Spontaneous
  Country: US (occurrence: None)
  Receive Date: 20221119
  Receipt Date: 20221212
  Transmission Date: 20230113
  Serious: No
  Sender: FDA-Public Use
  Company Number: 2022A359656

PATIENT
  Sex: Male
  Weight: 79.4 kg

DRUGS (2)
  1. BUDESONIDE\FORMOTEROL\GLYCOPYRRONIUM [Suspect]
     Active Substance: BUDESONIDE\FORMOTEROL\GLYCOPYRRONIUM
     Indication: Chronic obstructive pulmonary disease
     Dosage: 160/9/4.8MCG, 2 PUFFS BID
     Route: 055
  2. ALBUTEROL [Concomitant]
     Active Substance: ALBUTEROL

REACTIONS (7)
  - Feeling abnormal [Unknown]
  - Dyspnoea exertional [Unknown]
  - Feeling abnormal [Unknown]
  - Device use issue [Unknown]
  - Device malfunction [Unknown]
  - Device mechanical issue [Unknown]
  - Incorrect dose administered by device [Unknown]
